FAERS Safety Report 25714010 (Version 1)
Quarter: 2025Q3

REPORT INFORMATION
  Report Type: Spontaneous
  Country: US (occurrence: US)
  Receive Date: 20250822
  Receipt Date: 20250822
  Transmission Date: 20251020
  Serious: Yes (Other)
  Sender: BRAINTREE
  Company Number: US-BRAINTREE LABORATORIES, INC.-2025BTE00526

PATIENT
  Age: 68 Year
  Sex: Female
  Weight: 110.22 kg

DRUGS (3)
  1. SUFLAVE [Suspect]
     Active Substance: MAGNESIUM SULFATE ANHYDROUS\POLYETHYLENE GLYCOL 3350\POTASSIUM CHLORIDE\SODIUM CHLORIDE\SODIUM SULFA
     Indication: Colonoscopy
     Route: 048
     Dates: start: 20250806, end: 20250806
  2. VITAMINS NOS [Concomitant]
     Active Substance: VITAMINS
  3. TIROSINT [Concomitant]
     Active Substance: LEVOTHYROXINE SODIUM

REACTIONS (3)
  - Hypertension [Not Recovered/Not Resolved]
  - Dysphonia [Not Recovered/Not Resolved]
  - Headache [Not Recovered/Not Resolved]

NARRATIVE: CASE EVENT DATE: 20250801
